FAERS Safety Report 20979269 (Version 1)
Quarter: 2022Q2

REPORT INFORMATION
  Report Type: Spontaneous
  Country: GB (occurrence: GB)
  Receive Date: 20220620
  Receipt Date: 20220620
  Transmission Date: 20220721
  Serious: Yes (Other)
  Sender: FDA-Public Use
  Company Number: GB-JNJFOC-20220614365

PATIENT
  Age: 47 Year
  Sex: Female
  Weight: 70 kg

DRUGS (1)
  1. SUDAFED [Suspect]
     Active Substance: PSEUDOEPHEDRINE HYDROCHLORIDE
     Indication: Nasal congestion
     Dosage: 2 CAPSULES, UP TO 4 TIMES A DAY, REPORTED GENERIC NAME PHENYLEPHRINE HYDROCHLORIDE AND PSEUDOEPHEDRI
     Route: 065
     Dates: start: 20220601, end: 20220603

REACTIONS (2)
  - Cystitis [Not Recovered/Not Resolved]
  - Overdose [Unknown]

NARRATIVE: CASE EVENT DATE: 20220601
